FAERS Safety Report 8492723 (Version 3)
Quarter: 2013Q4

REPORT INFORMATION
  Report Type: Spontaneous
  Country: JP (occurrence: JP)
  Receive Date: 20120403
  Receipt Date: 20131106
  Transmission Date: 20140711
  Serious: Yes (Hospitalization)
  Sender: FDA-Public Use
  Company Number: JP-009507513-1204USA00186

PATIENT
  Age: 71 Year
  Sex: Male

DRUGS (3)
  1. JANUVIA [Suspect]
     Dosage: DAILY DOSAGE UNKNOWN
     Route: 048
     Dates: start: 201102
  2. LIVALO [Concomitant]
     Dosage: DAILY DOSAGE UNKNOWN
     Route: 048
  3. HARNAL [Concomitant]
     Dosage: DAILY DOSAGE UNKNOWN
     Route: 048

REACTIONS (1)
  - Dizziness [Unknown]
